FAERS Safety Report 5900492-2 (Version None)
Quarter: 2008Q3

REPORT INFORMATION
  Report Type: 
  Country: None (occurrence: None)
  Receive Date: 20080926
  Receipt Date: 20080922
  Transmission Date: 20090109
  Serious: Yes (Hospitalization)
  Sender: FDA-Public Use
  Company Number: NL-ROXANE LABORATORIES, INC.-2008-RO-00046RO

PATIENT

DRUGS (6)
  1. CITALOPRAM HYDROBROMIDE [Suspect]
  2. ANTIPSYCHOTIC [Suspect]
  3. BENZODIAZEPINE [Suspect]
  4. PARACETAMOL [Suspect]
  5. OTHER DRUGS [Concomitant]
  6. ACETYLCYSTEINE [Concomitant]
     Indication: DRUG TOXICITY
     Route: 042

REACTIONS (1)
  - DRUG TOXICITY [None]
